FAERS Safety Report 7507802-3 (Version None)
Quarter: 2011Q2

REPORT INFORMATION
  Report Type: 
  Country: None (occurrence: None)
  Receive Date: 20110527
  Receipt Date: 20110519
  Transmission Date: 20111010
  Serious: No
  Sender: FDA-Public Use
  Company Number: US-BIOGENIDEC-2011BI019059

PATIENT
  Age: 58 Year
  Sex: Female

DRUGS (1)
  1. TYSABRI [Suspect]
     Indication: MULTIPLE SCLEROSIS
     Route: 042
     Dates: start: 20110329

REACTIONS (9)
  - PARAESTHESIA [None]
  - FIBROMYALGIA [None]
  - INTERVERTEBRAL DISC PROTRUSION [None]
  - BALANCE DISORDER [None]
  - HEADACHE [None]
  - PAIN IN EXTREMITY [None]
  - INSOMNIA [None]
  - MALAISE [None]
  - NAUSEA [None]
